FAERS Safety Report 16853429 (Version 1)
Quarter: 2019Q3

REPORT INFORMATION
  Report Type: Spontaneous
  Country: JP (occurrence: JP)
  Receive Date: 20190925
  Receipt Date: 20190925
  Transmission Date: 20191005
  Serious: Yes (Death, Hospitalization, Other)
  Sender: FDA-Public Use
  Company Number: JP-INCYTE CORPORATION-2019IN009562

PATIENT

DRUGS (6)
  1. PLATELETS [Concomitant]
     Active Substance: HUMAN PLATELET, ALLOGENIC
     Indication: PRIMARY MYELOFIBROSIS
     Dosage: 30 U, UNK
     Route: 042
  2. JAKAVI [Suspect]
     Active Substance: RUXOLITINIB
     Dosage: 10 MG, QD
     Route: 048
  3. JAKAVI [Suspect]
     Active Substance: RUXOLITINIB
     Dosage: 20 MG, UNK
     Route: 048
  4. JAKAVI [Suspect]
     Active Substance: RUXOLITINIB
     Dosage: 5 MG, QD
     Route: 048
  5. JAKAVI [Suspect]
     Active Substance: RUXOLITINIB
     Indication: PRIMARY MYELOFIBROSIS
     Dosage: 10 MG, QD
     Route: 048
     Dates: start: 201704
  6. RED CELLS CONCENTRATES-LEUKOCYTES REDUCED [Concomitant]
     Active Substance: HUMAN RED BLOOD CELL
     Indication: PRIMARY MYELOFIBROSIS
     Dosage: 38 U, UNK
     Route: 042

REACTIONS (22)
  - Candida infection [Unknown]
  - Chest X-ray abnormal [Unknown]
  - Leukopenia [Unknown]
  - Pneumocystis jirovecii pneumonia [Unknown]
  - Blood creatinine abnormal [Unknown]
  - Dyspnoea [Unknown]
  - Neutropenia [Unknown]
  - Pyrexia [Unknown]
  - Lymphopenia [Unknown]
  - Pleural effusion [Unknown]
  - Oedema [Unknown]
  - Rash maculovesicular [Unknown]
  - Alanine aminotransferase abnormal [Unknown]
  - Oral pain [Unknown]
  - Cough [Unknown]
  - Oropharyngeal pain [Unknown]
  - Rash generalised [Unknown]
  - Anaemia [Unknown]
  - Aspergillus infection [Unknown]
  - Leukaemia [Fatal]
  - Thrombocytopenia [Unknown]
  - Varicella zoster virus infection [Recovered/Resolved]

NARRATIVE: CASE EVENT DATE: 201709
